FAERS Safety Report 13072782 (Version 2)
Quarter: 2018Q1

REPORT INFORMATION
  Report Type: Spontaneous
  Country: US (occurrence: US)
  Receive Date: 20161229
  Receipt Date: 20180115
  Transmission Date: 20180508
  Serious: Yes (Other)
  Sender: FDA-Public Use
  Company Number: US-SA-2016SA125157

PATIENT
  Age: 56 Year
  Sex: Female
  Weight: 64 kg

DRUGS (21)
  1. SERTRALINE [Concomitant]
     Active Substance: SERTRALINE HYDROCHLORIDE
     Indication: DEPRESSION
     Route: 065
     Dates: start: 1998
  2. SIMVASTATIN. [Concomitant]
     Active Substance: SIMVASTATIN
     Route: 065
     Dates: start: 2007
  3. HERCEPTIN [Concomitant]
     Active Substance: TRASTUZUMAB
     Route: 065
     Dates: start: 20100824, end: 201111
  4. ASPIRIN. [Concomitant]
     Active Substance: ASPIRIN
  5. TAXOTERE [Suspect]
     Active Substance: DOCETAXEL
     Indication: BREAST CANCER FEMALE
     Route: 051
     Dates: start: 20110307, end: 20110307
  6. PARAPLATIN [Concomitant]
     Active Substance: CARBOPLATIN
  7. ANASTROZOLE. [Concomitant]
     Active Substance: ANASTROZOLE
  8. TAXOTERE [Suspect]
     Active Substance: DOCETAXEL
     Indication: BREAST CANCER FEMALE
     Route: 051
     Dates: start: 20101108, end: 20101108
  9. NEULASTA [Concomitant]
     Active Substance: PEGFILGRASTIM
     Route: 058
     Dates: start: 20101102, end: 20110523
  10. PANTHENOL/RETINOL/THIAMINE HYDROCHLORIDE/ASCORBIC ACID/ERGOCALCIFEROL/FOLIC ACID/RIBOFLAVIN/NICOTINA [Concomitant]
  11. EMEND [Concomitant]
     Active Substance: APREPITANT
     Route: 048
     Dates: start: 20101102, end: 20110523
  12. PROCHLORPERAZINE MALEATE. [Concomitant]
     Active Substance: PROCHLORPERAZINE MALEATE
     Indication: NAUSEA
     Route: 048
     Dates: start: 20101102, end: 20110523
  13. LIDOCAINE/PRILOCAINE [Concomitant]
     Route: 061
     Dates: start: 20101102, end: 20120123
  14. ALENDRONATE [Concomitant]
     Active Substance: ALENDRONATE SODIUM
  15. VITAMIN D/CALCIUM [Concomitant]
  16. DEXAMETHASONE. [Concomitant]
     Active Substance: DEXAMETHASONE
     Dosage: TAKE 2 TABS ON ?DAY 2, 3 AND 4 OF EACH ?TREATMENT, THEN 1 TAB ON?DAY 5, 6 AND 7.0,
     Route: 048
     Dates: start: 20101102, end: 20110523
  17. LORAZEPAM. [Concomitant]
     Active Substance: LORAZEPAM
     Indication: NAUSEA
     Route: 048
     Dates: start: 20101102, end: 20110523
  18. FISH OIL [Concomitant]
     Active Substance: FISH OIL
  19. SERTRALINE [Concomitant]
     Active Substance: SERTRALINE HYDROCHLORIDE
     Indication: ANXIETY
     Route: 065
     Dates: start: 1998
  20. EMEND [Concomitant]
     Active Substance: APREPITANT
     Route: 048
     Dates: start: 20101102, end: 20110523
  21. CLONAZEPAM. [Concomitant]
     Active Substance: CLONAZEPAM
     Route: 065
     Dates: start: 1998

REACTIONS (5)
  - Alopecia [Not Recovered/Not Resolved]
  - Impaired quality of life [Unknown]
  - Emotional distress [Unknown]
  - Pain [Unknown]
  - Psychological trauma [Unknown]

NARRATIVE: CASE EVENT DATE: 201011
